FAERS Safety Report 7484013-1 (Version None)
Quarter: 2011Q1

REPORT INFORMATION
  Report Type: 
  Country: None (occurrence: None)
  Receive Date: 20110309
  Receipt Date: 20110128
  Transmission Date: 20110831
  Serious: No
  Sender: FDA-Public Use
  Company Number: 2011SP004354

PATIENT
  Age: 32 Year
  Sex: Male

DRUGS (4)
  1. PROPRANOLOL [Concomitant]
  2. LAMOTRIGINE [Concomitant]
  3. SAPHRIS [Suspect]
     Indication: BIPOLAR DISORDER
     Dosage: 10 MG;QD;SL
     Route: 060
     Dates: start: 20101101
  4. LITHIUM CARBONATE [Concomitant]

REACTIONS (2)
  - MUSCULAR WEAKNESS [None]
  - DIZZINESS [None]
